FAERS Safety Report 7494077-7 (Version None)
Quarter: 2011Q2

REPORT INFORMATION
  Report Type: 
  Country: None (occurrence: None)
  Receive Date: 20110520
  Receipt Date: 20110518
  Transmission Date: 20111010
  Serious: Yes (Other)
  Sender: FDA-Public Use
  Company Number: JP-PFIZER INC-2011087350

PATIENT
  Age: 46 Year
  Sex: Male

DRUGS (11)
  1. VARENICLINE TARTRATE [Suspect]
     Indication: NICOTINE DEPENDENCE
     Dosage: 1 MG, 2X/DAY
     Route: 048
     Dates: start: 20110309, end: 20110420
  2. SAIREI-TO [Concomitant]
     Dosage: 2.5 G, 3X/DAY
     Route: 048
     Dates: start: 20100113
  3. IRSOGLADINE MALEATE [Concomitant]
     Dosage: 2 MG, 2X/DAY
     Route: 048
     Dates: start: 20100113
  4. ASPARA K [Concomitant]
     Dosage: 300 MG, 1X/DAY
     Route: 048
     Dates: start: 20100113
  5. ETHYL ICOSAPENTATE [Concomitant]
     Dosage: 900 MG, 3X/DAY
     Route: 048
     Dates: start: 20100113
  6. ACTOS [Concomitant]
     Dosage: 30 MG, 1X/DAY
     Route: 048
     Dates: start: 20100113
  7. LIVALO [Concomitant]
     Dosage: 1 MG, ALTERNATE DAY
     Route: 048
     Dates: start: 20100113
  8. NOVORAPID [Concomitant]
     Dosage: 14 IU, 2X/DAY
     Route: 058
     Dates: start: 20100113
  9. OPALMON [Concomitant]
     Dosage: 5 UG, 3X/DAY
     Route: 048
     Dates: start: 20100113
  10. MEXITIL [Concomitant]
     Dosage: 100 MG, 3X/DAY
     Route: 048
     Dates: start: 20100113
  11. LIPIDIL [Concomitant]
     Dosage: 100 MG, 2X/DAY
     Route: 048
     Dates: start: 20100113

REACTIONS (3)
  - ASPARTATE AMINOTRANSFERASE INCREASED [None]
  - GAMMA-GLUTAMYLTRANSFERASE INCREASED [None]
  - ALANINE AMINOTRANSFERASE INCREASED [None]
